FAERS Safety Report 6646298-0 (Version None)
Quarter: 2010Q1

REPORT INFORMATION
  Report Type: 
  Country: None (occurrence: None)
  Receive Date: 20100323
  Receipt Date: 20100219
  Transmission Date: 20100710
  Serious: No
  Sender: FDA-Public Use
  Company Number: US-BAYER-201015253NA

PATIENT
  Age: 65 Year
  Sex: Male

DRUGS (2)
  1. EOVIST [Suspect]
     Indication: NUCLEAR MAGNETIC RESONANCE IMAGING ABDOMINAL
     Route: 042
     Dates: start: 20100219, end: 20100219
  2. OPTI 300 [Concomitant]
     Indication: PREMEDICATION
     Dosage: 1 HOUR BEFORE CT SCAN
     Dates: start: 20100219, end: 20100219

REACTIONS (1)
  - DYSPNOEA [None]
